FAERS Safety Report 9528158 (Version 14)
Quarter: 2018Q1

REPORT INFORMATION
  Report Type: Report from Study
  Country: CA (occurrence: CA)
  Receive Date: 20130917
  Receipt Date: 20180221
  Transmission Date: 20180509
  Serious: Yes (Other)
  Sender: FDA-Public Use
  Company Number: PHHY2012CA087493

PATIENT
  Age: 70 Year
  Sex: Male

DRUGS (5)
  1. SANDOSTATIN LAR DEPOT [Suspect]
     Active Substance: OCTREOTIDE ACETATE
     Dosage: 30 MG, QMO
     Route: 030
     Dates: start: 20121105
  2. SANDOSTATIN LAR DEPOT [Suspect]
     Active Substance: OCTREOTIDE ACETATE
     Indication: CARCINOID TUMOUR
     Dosage: 60 MG, (EVERY 3 WEEKS)
     Route: 030
     Dates: start: 20121001
  3. SANDOSTATIN LAR DEPOT [Suspect]
     Active Substance: OCTREOTIDE ACETATE
     Dosage: 60 MG, QMO (EVERY 4 WEEKS)
     Route: 030
     Dates: start: 20121203
  4. SANDOSTATIN LAR DEPOT [Suspect]
     Active Substance: OCTREOTIDE ACETATE
     Dosage: 60 MG, EVERY 3 WEEKS
     Route: 030
     Dates: start: 20130909
  5. SANDOSTATIN LAR DEPOT [Suspect]
     Active Substance: OCTREOTIDE ACETATE
     Dosage: 60 MG, EVERY 3 WEEKS
     Route: 030
     Dates: start: 20151110

REACTIONS (17)
  - Limb discomfort [Unknown]
  - Weight decreased [Unknown]
  - Injection site bruising [Unknown]
  - Transient ischaemic attack [Unknown]
  - Deep vein thrombosis [Unknown]
  - Blood pressure increased [Unknown]
  - Irritability [Unknown]
  - Inappropriate schedule of drug administration [Unknown]
  - Amnesia [Unknown]
  - Dyspepsia [Unknown]
  - Asthenia [Unknown]
  - Blood pressure systolic increased [Unknown]
  - Injection site pain [Unknown]
  - Pain in extremity [Unknown]
  - Needle issue [Unknown]
  - Discomfort [Unknown]
  - Injection site haemorrhage [Unknown]

NARRATIVE: CASE EVENT DATE: 20130907
